FAERS Safety Report 13675372 (Version 1)
Quarter: 2017Q2

REPORT INFORMATION
  Report Type: Spontaneous
  Country: AR (occurrence: AR)
  Receive Date: 20170621
  Receipt Date: 20170621
  Transmission Date: 20170830
  Serious: Yes (Other)
  Sender: FDA-Public Use
  Company Number: PHHY2017AR090025

PATIENT
  Age: 71 Year
  Sex: Female

DRUGS (2)
  1. ZOLEDRONATE [Suspect]
     Active Substance: ZOLEDRONIC ACID
     Indication: OSTEOPOROSIS
     Dosage: 5 MG, ONCE/SINGLE
     Route: 065
  2. MEPREDNISONE [Concomitant]
     Active Substance: MEPREDNISONE
     Indication: LUPUS NEPHRITIS
     Dosage: 40 MG, QD
     Route: 065

REACTIONS (1)
  - Spinal fracture [Unknown]
